FAERS Safety Report 21060386 (Version 3)
Quarter: 2024Q2

REPORT INFORMATION
  Report Type: Spontaneous
  Country: US (occurrence: US)
  Receive Date: 20220708
  Receipt Date: 20240405
  Transmission Date: 20240716
  Serious: No
  Sender: FDA-Public Use
  Company Number: US-SA-SAC20220705001277

PATIENT
  Age: 45 Year
  Sex: Male
  Weight: 68 kg

DRUGS (2)
  1. DUPIXENT [Suspect]
     Active Substance: DUPILUMAB
     Indication: Dermatitis atopic
     Dosage: 300 MG, QOW
     Route: 058
     Dates: start: 202106
  2. BETAMETHASONE DIPROPIONATE, AUGMENTED [Concomitant]
     Dosage: UNK

REACTIONS (4)
  - Skin haemorrhage [Unknown]
  - Skin weeping [Unknown]
  - Oral herpes [Unknown]
  - Eczema [Unknown]

NARRATIVE: CASE EVENT DATE: 20220301
